FAERS Safety Report 4392219-3 (Version None)
Quarter: 2004Q3

REPORT INFORMATION
  Report Type: 
  Country: None (occurrence: None)
  Receive Date: 20040702
  Receipt Date: 20040616
  Transmission Date: 20050211
  Serious: Yes (Hospitalization)
  Sender: FDA-Public Use
  Company Number: DSA_24580_2004

PATIENT
  Age: 73 Year
  Sex: Female
  Weight: 66.7 kg

DRUGS (14)
  1. LORAZEPAM [Suspect]
  2. ULTRAM [Suspect]
  3. VITAMIN D [Concomitant]
  4. VITAMIN C [Concomitant]
  5. LIPITOR [Concomitant]
  6. NEXIUM [Concomitant]
  7. KLONOPIN [Concomitant]
  8. ELAVIL [Concomitant]
  9. MULTI-VITAMINS [Concomitant]
  10. MAGNESIUM [Concomitant]
  11. ZINC [Concomitant]
  12. VITAMIN B COMPLEX CAP [Concomitant]
  13. DARVOCET-N 100 [Concomitant]
  14. ASPIRIN [Concomitant]

REACTIONS (9)
  - ANAEMIA POSTOPERATIVE [None]
  - ANXIETY [None]
  - BRADYCARDIA [None]
  - CONDITION AGGRAVATED [None]
  - HYPOTENSION [None]
  - POST PROCEDURAL COMPLICATION [None]
  - POST PROCEDURAL PAIN [None]
  - PRURITUS [None]
  - SYNCOPE VASOVAGAL [None]
